FAERS Safety Report 12796887 (Version 1)
Quarter: 2016Q3

REPORT INFORMATION
  Report Type: Spontaneous
  Country: US (occurrence: US)
  Receive Date: 20160929
  Receipt Date: 20160929
  Transmission Date: 20161109
  Serious: Yes (Other)
  Sender: FDA-Public Use
  Company Number: US-SHIRE-US201613543

PATIENT
  Age: 57 Year
  Sex: Male
  Weight: 75.28 kg

DRUGS (7)
  1. LIALDA [Suspect]
     Active Substance: MESALAMINE
     Dosage: 2.4 G, 1X/DAY:QD
     Route: 048
     Dates: start: 2015, end: 20160815
  2. CRESTOR [Concomitant]
     Active Substance: ROSUVASTATIN CALCIUM
     Indication: AORTIC VALVE REPLACEMENT
     Dosage: 10 MG, 1X/DAY:QD
     Route: 048
     Dates: start: 1999
  3. FISH OIL [Concomitant]
     Active Substance: FISH OIL
     Indication: CARDIAC DISORDER
     Dosage: UNK, 1X/DAY:QD
     Route: 048
  4. LIALDA [Suspect]
     Active Substance: MESALAMINE
     Indication: COLITIS ULCERATIVE
     Dosage: 4.8 G, 1X/DAY:QD
     Route: 048
     Dates: start: 201404, end: 2015
  5. LIALDA [Suspect]
     Active Substance: MESALAMINE
     Dosage: 3.6 G, 1X/DAY:QD
     Route: 048
     Dates: start: 2015, end: 2015
  6. LISINOPRIL. [Concomitant]
     Active Substance: LISINOPRIL
     Indication: AORTIC VALVE REPLACEMENT
     Dosage: 5 MG, 1X/DAY:QD
     Route: 048
     Dates: start: 1999
  7. WARFARIN [Concomitant]
     Active Substance: WARFARIN
     Indication: AORTIC VALVE REPLACEMENT
     Dosage: 10 MG, OTHER(10 MG FIVE TIMES A WEEK BY MOUTH AND 5 MG TWO TIMES A WEEK BY MOUTN)
     Route: 050
     Dates: start: 1999

REACTIONS (6)
  - Adverse event [Unknown]
  - Abnormal loss of weight [Not Recovered/Not Resolved]
  - Malabsorption [Not Recovered/Not Resolved]
  - Colitis ulcerative [Not Recovered/Not Resolved]
  - Product quality issue [Unknown]
  - Medication residue present [Not Recovered/Not Resolved]

NARRATIVE: CASE EVENT DATE: 2014
